FAERS Safety Report 24080992 (Version 1)
Quarter: 2024Q3

REPORT INFORMATION
  Report Type: Spontaneous
  Country: ES (occurrence: ES)
  Receive Date: 20240711
  Receipt Date: 20240711
  Transmission Date: 20241017
  Serious: Yes (Other)
  Sender: AMGEN
  Company Number: ES-AMGEN-ESPSP2024134139

PATIENT
  Age: 35 Year
  Sex: Female

DRUGS (14)
  1. ADALIMUMAB [Suspect]
     Active Substance: ADALIMUMAB\ISOPROPYL ALCOHOL
     Indication: Juvenile idiopathic arthritis
     Dosage: UNK
     Route: 065
  2. PREDNISONE [Concomitant]
     Active Substance: PREDNISONE
     Indication: Juvenile idiopathic arthritis
     Dosage: 10 MILLIGRAM, QD
     Route: 065
  3. PREDNISONE [Concomitant]
     Active Substance: PREDNISONE
     Dosage: 3.75 MG/DL, QD
     Route: 065
  4. METHOTREXATE [Concomitant]
     Active Substance: METHOTREXATE
     Indication: Juvenile idiopathic arthritis
     Dosage: UNK
     Route: 065
  5. LEFLUNOMIDE [Concomitant]
     Active Substance: LEFLUNOMIDE
     Indication: Juvenile idiopathic arthritis
     Dosage: UNK
     Route: 065
  6. INFLIXIMAB [Concomitant]
     Active Substance: INFLIXIMAB
     Indication: Juvenile idiopathic arthritis
     Dosage: UNK
     Route: 065
  7. ETANERCEPT [Concomitant]
     Active Substance: ETANERCEPT
     Indication: Juvenile idiopathic arthritis
     Dosage: 50 MILLIGRAM, QWK
     Route: 058
  8. TOCILIZUMAB [Concomitant]
     Active Substance: TOCILIZUMAB
     Indication: Juvenile idiopathic arthritis
     Dosage: UNK
     Route: 065
  9. RITUXIMAB [Concomitant]
     Active Substance: RITUXIMAB
     Indication: Juvenile idiopathic arthritis
     Dosage: UNK
     Route: 065
  10. ABATACEPT [Concomitant]
     Active Substance: ABATACEPT
     Indication: Juvenile idiopathic arthritis
     Dosage: UNK
     Route: 065
  11. TOFACITINIB [Concomitant]
     Active Substance: TOFACITINIB
     Indication: Juvenile idiopathic arthritis
     Dosage: UNK
     Route: 065
  12. CANAKINUMAB [Concomitant]
     Active Substance: CANAKINUMAB
     Indication: Juvenile idiopathic arthritis
     Dosage: UNK
     Route: 065
  13. BARICITINIB [Concomitant]
     Active Substance: BARICITINIB
     Indication: Juvenile idiopathic arthritis
     Dosage: UNK
     Route: 065
  14. UPADACITINIB [Concomitant]
     Active Substance: UPADACITINIB
     Indication: Juvenile idiopathic arthritis
     Dosage: 15 MILLIGRAM, QD
     Route: 048

REACTIONS (3)
  - Knee arthroplasty [Unknown]
  - Fracture [Unknown]
  - COVID-19 [Unknown]
